FAERS Safety Report 4894582-3 (Version None)
Quarter: 2006Q1

REPORT INFORMATION
  Report Type: 
  Country: None (occurrence: None)
  Receive Date: 20060127
  Receipt Date: 20060125
  Transmission Date: 20060701
  Serious: Yes (Disabling)
  Sender: FDA-Public Use
  Company Number: GB-MERCK-0601GBR00129

PATIENT
  Age: 56 Year
  Sex: Female
  Weight: 105 kg

DRUGS (7)
  1. FOSAMAX [Suspect]
     Indication: OSTEOPOROSIS
     Route: 048
     Dates: start: 20051019, end: 20051111
  2. DIHYDROCODEINE [Concomitant]
     Route: 065
  3. AMITRIPTYLINE HYDROCHLORIDE [Concomitant]
     Route: 065
  4. ACETAMINOPHEN [Concomitant]
     Route: 065
  5. BENDROFLUMETHIAZIDE [Concomitant]
     Route: 065
  6. IBUPROFEN [Concomitant]
     Route: 065
  7. OMEPRAZOLE [Concomitant]
     Route: 065

REACTIONS (1)
  - JAUNDICE CHOLESTATIC [None]
